FAERS Safety Report 8935643 (Version 4)
Quarter: 2013Q1

REPORT INFORMATION
  Report Type: Report from Study
  Country: FR (occurrence: FR)
  Receive Date: 20121130
  Receipt Date: 20130328
  Transmission Date: 20140127
  Serious: Yes (Hospitalization)
  Sender: FDA-Public Use
  Company Number: FR-MILLENNIUM PHARMACEUTICALS, INC.-2012-06737

PATIENT
  Sex: 0

DRUGS (12)
  1. VELCADE [Suspect]
     Indication: PLASMA CELL MYELOMA
     Dosage: 1.3 MG/M2, UNK
     Route: 065
     Dates: start: 20120831, end: 20120910
  2. VELCADE [Suspect]
     Dosage: 2.2 MG, UNK
     Dates: start: 20121221, end: 20121226
  3. DEXAMETHASONE [Suspect]
     Indication: PLASMA CELL MYELOMA
     Dosage: 20 MG, UNK
     Route: 065
     Dates: start: 20120831, end: 20121226
  4. INSULIN [Concomitant]
  5. EUPRESSYL                          /00631801/ [Concomitant]
  6. UVEDOSE [Concomitant]
  7. CALCIDIA [Concomitant]
  8. INEGY [Concomitant]
     Dosage: 40 MG, UNK
     Dates: start: 201207
  9. EUPANTOL [Concomitant]
     Dosage: 40 MG, UNK
     Dates: start: 201208
  10. AMLODIPINE [Concomitant]
     Dosage: 10 MG, UNK
     Dates: start: 20120815
  11. LASILIX                            /00032601/ [Concomitant]
     Indication: HYPERTENSION
     Dosage: 1000 MG, UNK
     Dates: start: 20121001
  12. PARACETAMOL [Concomitant]
     Route: 048

REACTIONS (3)
  - Lung disorder [Recovered/Resolved]
  - Acute pulmonary oedema [Recovered/Resolved]
  - Diarrhoea [Recovered/Resolved]
